FAERS Safety Report 6956582-9 (Version None)
Quarter: 2010Q3

REPORT INFORMATION
  Report Type: 
  Country: None (occurrence: None)
  Receive Date: 20100830
  Receipt Date: 20100819
  Transmission Date: 20110219
  Serious: Yes (Other)
  Sender: FDA-Public Use
  Company Number: US-ASTRAZENECA-2010SE38989

PATIENT
  Age: 64 Year
  Sex: Male

DRUGS (9)
  1. NEXIUM [Suspect]
     Indication: GASTROOESOPHAGEAL REFLUX DISEASE
     Route: 048
     Dates: start: 20010101, end: 20100101
  2. ASPIRIN [Concomitant]
  3. COQ ENZYME [Concomitant]
  4. LOTRIL [Concomitant]
  5. LOVAZA [Concomitant]
  6. TOPROL-XL [Concomitant]
     Route: 048
  7. GLUCOSAMIDE CHONDROITIN [Concomitant]
  8. ZOCOR [Concomitant]
  9. PLAVIX [Concomitant]

REACTIONS (2)
  - CATHETERISATION CARDIAC [None]
  - MALAISE [None]
